FAERS Safety Report 11152898 (Version 1)
Quarter: 2015Q2

REPORT INFORMATION
  Report Type: Spontaneous
  Country: UG (occurrence: None)
  Receive Date: 20150527
  Receipt Date: 20150527
  Transmission Date: 20150821
  Serious: Yes (Hospitalization, Other)
  Sender: FDA-Public Use
  Company Number: UG-2013VAL000498

PATIENT
  Age: 23 Year
  Sex: Female

DRUGS (3)
  1. METOPROLOL TARTRATE (METOPROLOL TARTRATE) UNKNOWN [Suspect]
     Active Substance: METOPROLOL TARTRATE
     Indication: LABILE BLOOD PRESSURE
     Route: 042
  2. MAGNESIUM SULPHATE /07507001/ [Suspect]
     Active Substance: MAGNESIUM SULFATE
     Indication: GESTATIONAL HYPERTENSION
     Route: 030
  3. HYDRALAZINE [Suspect]
     Active Substance: HYDRALAZINE HYDROCHLORIDE
     Indication: LABILE BLOOD PRESSURE
     Route: 042

REACTIONS (6)
  - Caesarean section [None]
  - Labile blood pressure [None]
  - Secondary hypertension [None]
  - Exposure during pregnancy [None]
  - Premature labour [None]
  - Phaeochromocytoma [None]
